FAERS Safety Report 12313872 (Version 1)
Quarter: 2016Q2

REPORT INFORMATION
  Report Type: Spontaneous
  Country: US (occurrence: US)
  Receive Date: 20160428
  Receipt Date: 20160428
  Transmission Date: 20160815
  Serious: No
  Sender: FDA-Public Use
  Company Number: US-BAUSCH-BL-2015-018472

PATIENT
  Age: 86 Year
  Sex: Female
  Weight: 57.66 kg

DRUGS (1)
  1. ALDARA [Suspect]
     Active Substance: IMIQUIMOD
     Indication: MALIGNANT MELANOMA
     Dosage: APPLIED TO THE LEFT EYELID DAILY
     Route: 061

REACTIONS (3)
  - Off label use [Unknown]
  - Accidental exposure to product [Unknown]
  - Eye pain [Unknown]

NARRATIVE: CASE EVENT DATE: 20150730
